FAERS Safety Report 9748166 (Version 1)
Quarter: 2013Q4

REPORT INFORMATION
  Report Type: Spontaneous
  Country: DK (occurrence: None)
  Receive Date: 20131206
  Receipt Date: 20131206
  Transmission Date: 20140711
  Serious: Yes (Death)
  Sender: FDA-Public Use
  Company Number: CO-OR-DK-2013-224

PATIENT
  Sex: 0

DRUGS (2)
  1. PREDNISOLONE [Suspect]
     Indication: AUTOIMMUNE HAEMOLYTIC ANAEMIA
     Dosage: 1.5 MG/KG/D FOR 2 WEEKS FOLLOWED BY TAPERING
  2. RITUXIMAB [Suspect]
     Indication: AUTOIMMUNE HAEMOLYTIC ANAEMIA
     Dosage: 375 MG/M2, ONCE A WEEK, INTRAVENOUS
     Route: 042

REACTIONS (1)
  - Pneumonia [None]
